FAERS Safety Report 15492847 (Version 1)
Quarter: 2018Q4

REPORT INFORMATION
  Report Type: Spontaneous
  Country: US (occurrence: US)
  Receive Date: 20181004
  Receipt Date: 20181004
  Transmission Date: 20190205
  Serious: No
  Sender: FDA-Public Use
  Company Number: None

PATIENT
  Age: 73 Year
  Sex: Male

DRUGS (1)
  1. ENBREL [Suspect]
     Active Substance: ETANERCEPT
     Dates: start: 201709, end: 201809

REACTIONS (7)
  - Withdrawal syndrome [None]
  - Rheumatoid arthritis [None]
  - Fatigue [None]
  - Musculoskeletal stiffness [None]
  - Myalgia [None]
  - Shoulder operation [None]
  - Arthralgia [None]

NARRATIVE: CASE EVENT DATE: 20180924
